FAERS Safety Report 5705502-3 (Version None)
Quarter: 2008Q2

REPORT INFORMATION
  Report Type: 
  Country: None (occurrence: None)
  Receive Date: 20080411
  Receipt Date: 20080402
  Transmission Date: 20081010
  Serious: Yes (Hospitalization, Other)
  Sender: FDA-Public Use
  Company Number: 163-21880-08030617

PATIENT
  Age: 64 Year
  Sex: Female

DRUGS (13)
  1. REVLIMID [Suspect]
     Indication: CHRONIC LYMPHOCYTIC LEUKAEMIA
     Dosage: 10 MG, DAILY, ORAL
     Route: 048
     Dates: start: 20080304, end: 20080306
  2. ADVAIR DISKUS (SERETIDE MITE) [Concomitant]
  3. BACTRIM [Concomitant]
  4. CARDIZEM [Concomitant]
  5. CO-Q10 (UBIDECARENONE) [Concomitant]
  6. FLOVENT DISKUS (FLUTICASONE PROPIONATE) [Concomitant]
  7. MULTIVITAMIN [Concomitant]
  8. PANTOPRAZOLE SODIUM [Concomitant]
  9. PREDNISONE TAB [Concomitant]
  10. SYNTHROID [Concomitant]
  11. VALTREX [Concomitant]
  12. VORICONAZOLE (VORICONAZOLE) [Concomitant]
  13. ASPIRIN [Concomitant]

REACTIONS (6)
  - DEEP VEIN THROMBOSIS [None]
  - HAEMOGLOBIN DECREASED [None]
  - LOCALISED INTRAABDOMINAL FLUID COLLECTION [None]
  - PNEUMONIA RESPIRATORY SYNCYTIAL VIRAL [None]
  - PULMONARY EMBOLISM [None]
  - RESPIRATORY FAILURE [None]
